FAERS Safety Report 16025318 (Version 6)
Quarter: 2024Q1

REPORT INFORMATION
  Report Type: Spontaneous
  Country: US (occurrence: US)
  Receive Date: 20190301
  Receipt Date: 20240109
  Transmission Date: 20240409
  Serious: No
  Sender: FDA-Public Use
  Company Number: US-PFIZER INC-2019092441

PATIENT
  Age: 65 Year
  Sex: Female
  Weight: 71.655 kg

DRUGS (1)
  1. XELJANZ XR [Suspect]
     Active Substance: TOFACITINIB CITRATE
     Indication: Rheumatoid arthritis
     Dosage: 11 MG, 1X/DAY

REACTIONS (4)
  - Brain fog [Unknown]
  - Illness [Unknown]
  - Pain [Unknown]
  - Blood pressure increased [Unknown]
